FAERS Safety Report 6050653-X (Version None)
Quarter: 2009Q1

REPORT INFORMATION
  Report Type: 
  Country: None (occurrence: None)
  Receive Date: 20090121
  Receipt Date: 20090115
  Transmission Date: 20090719
  Serious: Yes (Other)
  Sender: FDA-Public Use
  Company Number: 2008SP022063

PATIENT
  Age: 70 Year
  Sex: Male
  Weight: 64 kg

DRUGS (6)
  1. PEG-INTRON [Suspect]
     Indication: HEPATITIS C
     Dosage: 100 MCG;QW; SC
     Route: 058
     Dates: start: 20060218, end: 20070120
  2. REBETOL [Suspect]
     Indication: HEPATITIS C
     Dosage: 800 MG, QD; PO, 600 MG, QD; PO
     Route: 048
     Dates: start: 20060218, end: 20060310
  3. REBETOL [Suspect]
     Indication: HEPATITIS C
     Dosage: 800 MG, QD; PO, 600 MG, QD; PO
     Route: 048
     Dates: start: 20060311, end: 20070120
  4. URSO 250 [Concomitant]
  5. DIOVAN [Concomitant]
  6. AMARYL [Concomitant]

REACTIONS (3)
  - DEMENTIA [None]
  - HAEMOGLOBIN DECREASED [None]
  - LACUNAR INFARCTION [None]
